FAERS Safety Report 7948469-X (Version None)
Quarter: 2011Q4

REPORT INFORMATION
  Report Type: 
  Country: None (occurrence: None)
  Receive Date: 20111130
  Receipt Date: 20111122
  Transmission Date: 20120403
  Serious: Yes (Hospitalization)
  Sender: FDA-Public Use
  Company Number: US-ASTELLAS-2011US007874

PATIENT
  Sex: Male
  Weight: 79 kg

DRUGS (6)
  1. PROGRAF [Suspect]
     Indication: LUNG TRANSPLANT
     Dosage: 1 MG, BID
     Route: 048
     Dates: start: 19991115
  2. VALCYCLOR [Concomitant]
     Indication: PRODUCT USED FOR UNKNOWN INDICATION
     Dosage: 250 MG, UID/QD
     Route: 048
  3. NEXIUM [Concomitant]
     Indication: PRODUCT USED FOR UNKNOWN INDICATION
     Dosage: 40 ML, UID/QD
     Route: 048
  4. GLYBURIDE [Concomitant]
     Indication: PRODUCT USED FOR UNKNOWN INDICATION
     Dosage: 25 MG, BID
     Route: 048
  5. MYFORTIC [Concomitant]
     Indication: LUNG TRANSPLANT
     Dosage: 360 ML, BID
     Route: 048
  6. ADVAIR DISKUS 100/50 [Concomitant]
     Indication: LUNG DISORDER
     Dosage: 250-50 MG PER DAY
     Route: 048

REACTIONS (3)
  - OFF LABEL USE [None]
  - CORONARY ARTERY OCCLUSION [None]
  - NEPHROLITHIASIS [None]
